FAERS Safety Report 25399900 (Version 1)
Quarter: 2025Q2

REPORT INFORMATION
  Report Type: Spontaneous
  Country: JP (occurrence: JP)
  Receive Date: 20250605
  Receipt Date: 20250605
  Transmission Date: 20250716
  Serious: Yes (Other)
  Sender: NOVARTIS
  Company Number: JP-002147023-NVSJ2025JP005824

PATIENT
  Age: 70 Year
  Sex: Male

DRUGS (1)
  1. SIPONIMOD [Suspect]
     Active Substance: SIPONIMOD
     Indication: Secondary progressive multiple sclerosis
     Route: 065

REACTIONS (3)
  - Encephalitis [Recovering/Resolving]
  - Altered state of consciousness [Recovering/Resolving]
  - Aphasia [Recovering/Resolving]
